FAERS Safety Report 15057536 (Version 1)
Quarter: 2018Q2

REPORT INFORMATION
  Report Type: Spontaneous
  Country: GB (occurrence: GB)
  Receive Date: 20180625
  Receipt Date: 20180625
  Transmission Date: 20180711
  Serious: Yes (Other)
  Sender: FDA-Public Use
  Company Number: GB-ACCORD-068621

PATIENT
  Age: 70 Year
  Sex: Female

DRUGS (3)
  1. FUROSEMIDE. [Suspect]
     Active Substance: FUROSEMIDE
     Indication: CHRONIC KIDNEY DISEASE
     Dosage: STRENGTH: 10 MG/ML
     Dates: start: 2008
  2. DIANEAL [Suspect]
     Active Substance: CALCIUM CHLORIDE\DEXTROSE\MAGNESIUM CHLORIDE\SODIUM CHLORIDE\SODIUM LACTATE
     Indication: PERITONEAL DIALYSIS
     Dosage: STRENGTH: 1.36% W/V / 13.6 MG/ML
     Route: 033
  3. EXTRANEAL [Suspect]
     Active Substance: CALCIUM CHLORIDE\ICODEXTRIN\MAGNESIUM CHLORIDE\SODIUM CHLORIDE\SODIUM LACTATE
     Indication: PERITONEAL DIALYSIS
     Dosage: ONE 2L EXTRANEAL BAG OVERNIGHT
     Route: 033
     Dates: start: 201111

REACTIONS (13)
  - Bladder prolapse [Unknown]
  - Glomerular filtration rate decreased [Unknown]
  - Nausea [Unknown]
  - Glycosylated haemoglobin increased [Unknown]
  - Dehydration [Unknown]
  - Gastrointestinal disorder [Unknown]
  - Intestinal prolapse [Unknown]
  - End stage renal disease [Unknown]
  - Blood glucose increased [Unknown]
  - Off label use [Unknown]
  - Weight decreased [Unknown]
  - Disease recurrence [Unknown]
  - Abdominal distension [Unknown]

NARRATIVE: CASE EVENT DATE: 201107
